FAERS Safety Report 7450847-2 (Version None)
Quarter: 2011Q2

REPORT INFORMATION
  Report Type: 
  Country: None (occurrence: None)
  Receive Date: 20110428
  Receipt Date: 20110428
  Transmission Date: 20111010
  Serious: Yes (Other)
  Sender: FDA-Public Use
  Company Number: None

PATIENT
  Age: 22 Year
  Sex: Female
  Weight: 81.1939 kg

DRUGS (2)
  1. CREST PRO HEALTH COMPLETE SODIUM FLUORIDE 0.0219% PROCTER + GAMBLE [Suspect]
     Indication: BREATH ODOUR
     Dosage: 10 ML 2 X DAILY PO
     Route: 048
     Dates: start: 20110426, end: 20110427
  2. CREST PRO HEALTH COMPLETE SODIUM FLUORIDE 0.0219% PROCTER + GAMBLE [Suspect]
     Indication: ENAMEL ANOMALY
     Dosage: 10 ML 2 X DAILY PO
     Route: 048
     Dates: start: 20110426, end: 20110427

REACTIONS (4)
  - FEELING ABNORMAL [None]
  - INSOMNIA [None]
  - AGEUSIA [None]
  - ORAL MUCOSAL EXFOLIATION [None]
